FAERS Safety Report 16272257 (Version 1)
Quarter: 2019Q2

REPORT INFORMATION
  Report Type: Spontaneous
  Country: GB (occurrence: GB)
  Receive Date: 20190503
  Receipt Date: 20190503
  Transmission Date: 20190711
  Serious: Yes (Hospitalization)
  Sender: FDA-Public Use
  Company Number: GB-TEVA-2019-GB-1045843

PATIENT
  Age: 74 Year
  Sex: Male

DRUGS (20)
  1. CO-BENELDOPA [Concomitant]
     Active Substance: BENSERAZIDE HYDROCHLORIDE\LEVODOPA
     Dosage: 50MG/200MG, AT 9AM AND 8PM.
     Route: 048
  2. BUMETANIDE. [Suspect]
     Active Substance: BUMETANIDE
     Route: 048
  3. BISOPROLOL [Concomitant]
     Active Substance: BISOPROLOL
     Route: 048
  4. SALBUTAMOL [Concomitant]
     Active Substance: ALBUTEROL
     Route: 055
  5. TOPIRAMATE. [Concomitant]
     Active Substance: TOPIRAMATE
     Route: 048
  6. ARTIFICIAL SALIVA [Concomitant]
     Route: 061
  7. LOSARTAN. [Concomitant]
     Active Substance: LOSARTAN
     Route: 048
  8. COLECALCIFEROL [Concomitant]
     Active Substance: CHOLECALCIFEROL
     Route: 048
  9. MADOPAR [Concomitant]
     Active Substance: BENSERAZIDE HYDROCHLORIDE\LEVODOPA
     Dosage: 100MG/25MG, 12PM AND 4PM.
     Route: 048
  10. LEVETIRACETAM. [Concomitant]
     Active Substance: LEVETIRACETAM
     Route: 048
  11. LAMOTRIGINE. [Concomitant]
     Active Substance: LAMOTRIGINE
     Route: 048
  12. ALFUZOSIN [Concomitant]
     Active Substance: ALFUZOSIN
     Route: 048
  13. BRIMONIDINE [Concomitant]
     Active Substance: BRIMONIDINE TARTRATE
     Dosage: BOTH EYES.
     Route: 050
  14. SIMVASTATIN. [Concomitant]
     Active Substance: SIMVASTATIN
     Dosage: AT NIGHT.
     Route: 048
  15. LAMOTRIGINE. [Concomitant]
     Active Substance: LAMOTRIGINE
     Dosage: AT NIGHT.
     Route: 048
  16. METOLAZONE. [Suspect]
     Active Substance: METOLAZONE
     Dosage: TUESDAYS AND FRIDAYS.
     Route: 048
     Dates: end: 20190124
  17. ACETYLSALICYLIC ACID [Concomitant]
     Active Substance: ASPIRIN
     Route: 048
  18. BRINZOLAMIDE [Concomitant]
     Active Substance: BRINZOLAMIDE
     Dosage: 10MG/ML, BOTH EYES.
     Route: 048
  19. LATANOPROST. [Concomitant]
     Active Substance: LATANOPROST
     Dosage: 50MICROGRAMS/ML DROP, BOTH EYES AT NIGHT.
     Route: 050
  20. TRELEGY ELLIPTA [Concomitant]
     Active Substance: FLUTICASONE FUROATE\UMECLIDINIUM BROMIDE\VILANTEROL TRIFENATATE
     Dosage: 92MICROGRAMS/55MICROGRAMS/22MICROGRAMS/DOSE
     Route: 055

REACTIONS (5)
  - Hypokalaemia [Recovered/Resolved]
  - Acute kidney injury [Recovered/Resolved]
  - Petit mal epilepsy [Unknown]
  - Electrocardiogram QT prolonged [Unknown]
  - Confusional state [Recovered/Resolved]

NARRATIVE: CASE EVENT DATE: 20190124
